FAERS Safety Report 4794452-5 (Version None)
Quarter: 2005Q4

REPORT INFORMATION
  Report Type: 
  Country: None (occurrence: None)
  Receive Date: 20051011
  Receipt Date: 20050907
  Transmission Date: 20060501
  Serious: Yes (Hospitalization)
  Sender: FDA-Public Use
  Company Number: JP-BRISTOL-MYERS SQUIBB COMPANY-13108600

PATIENT
  Age: 24 Year
  Sex: Male

DRUGS (5)
  1. REYATAZ [Suspect]
     Indication: HIV INFECTION
     Route: 048
     Dates: start: 20040223
  2. COMBIVIR [Suspect]
     Indication: HIV INFECTION
     Route: 048
     Dates: start: 20040223
  3. ZERIT [Concomitant]
     Route: 048
     Dates: start: 20010810, end: 20040222
  4. EPIVIR [Concomitant]
     Dosage: 01-APR-2001 -} 31-MAR-2003:DOSAGE UNKNOWN.  150 MG/DAY INITIATED ON 01-APR-2003 -} 22-FEB-2004.
     Route: 048
     Dates: start: 20010401, end: 20040222
  5. NOVACT M [Concomitant]
     Dosage: THERAPY STOPPED ON 11-MAR-2002 AND RESTARTED ON 01-APR-2002.
     Route: 042
     Dates: start: 20010401

REACTIONS (1)
  - DIABETES MELLITUS [None]
